FAERS Safety Report 15454559 (Version 8)
Quarter: 2020Q4

REPORT INFORMATION
  Report Type: Spontaneous
  Country: US (occurrence: US)
  Receive Date: 20181002
  Receipt Date: 20201105
  Transmission Date: 20210113
  Serious: No
  Sender: FDA-Public Use
  Company Number: US-PFIZER INC-2018393712

PATIENT
  Age: 8 Year
  Sex: Male
  Weight: 25.85 kg

DRUGS (3)
  1. GENOTROPIN [Suspect]
     Active Substance: SOMATROPIN
     Indication: BODY HEIGHT BELOW NORMAL
  2. LEVOTHYROXINE. [Concomitant]
     Active Substance: LEVOTHYROXINE
     Indication: THYROID DISORDER
     Dosage: 75 UG, DAILY
  3. GENOTROPIN [Suspect]
     Active Substance: SOMATROPIN
     Indication: SEPTO-OPTIC DYSPLASIA
     Dosage: 0.8 MG, DAILY
     Dates: start: 20180611

REACTIONS (7)
  - Product dose omission issue [Unknown]
  - Protein total decreased [Unknown]
  - Off label use [Unknown]
  - Blood thyroid stimulating hormone increased [Unknown]
  - Aspartate aminotransferase increased [Unknown]
  - Product use in unapproved indication [Unknown]
  - Globulins decreased [Unknown]

NARRATIVE: CASE EVENT DATE: 20180611
